FAERS Safety Report 15962722 (Version 1)
Quarter: 2019Q1

REPORT INFORMATION
  Report Type: Spontaneous
  Country: SE (occurrence: SE)
  Receive Date: 20190214
  Receipt Date: 20190214
  Transmission Date: 20190417
  Serious: Yes (Disabling)
  Sender: FDA-Public Use
  Company Number: PHHY2019SE034764

PATIENT
  Age: 87 Year
  Sex: Female
  Weight: 32.4 kg

DRUGS (4)
  1. OPATANOL [Suspect]
     Active Substance: OLOPATADINE
     Indication: DRY EYE
     Dosage: 1 GTT, BID
     Route: 065
     Dates: start: 201808, end: 20190115
  2. CANDESARTAN. [Concomitant]
     Active Substance: CANDESARTAN
     Indication: PRODUCT USED FOR UNKNOWN INDICATION
     Route: 065
  3. CLOPIDOGREL [Concomitant]
     Active Substance: CLOPIDOGREL BISULFATE
     Indication: PRODUCT USED FOR UNKNOWN INDICATION
     Route: 065
  4. ARTELAC [Suspect]
     Active Substance: HYPROMELLOSES
     Indication: EYE DISORDER
     Dosage: 3 GTT, QD
     Route: 065

REACTIONS (5)
  - Eye irritation [Not Recovered/Not Resolved]
  - Burning sensation [Not Recovered/Not Resolved]
  - Eye pain [Not Recovered/Not Resolved]
  - Dry eye [Not Recovered/Not Resolved]
  - Foreign body sensation in eyes [Not Recovered/Not Resolved]

NARRATIVE: CASE EVENT DATE: 201812
